FAERS Safety Report 7904143-7 (Version None)
Quarter: 2011Q4

REPORT INFORMATION
  Report Type: 
  Country: None (occurrence: None)
  Receive Date: 20111109
  Receipt Date: 20111103
  Transmission Date: 20120403
  Serious: Yes (Death, Other)
  Sender: FDA-Public Use
  Company Number: NL-PFIZER INC-2011269943

PATIENT
  Age: 71 Year
  Sex: Male

DRUGS (2)
  1. REVATIO [Suspect]
     Dosage: 20 MG, UNK
     Route: 048
     Dates: start: 20110408
  2. REVATIO [Suspect]
     Dosage: 40 MG, 3X/DAY

REACTIONS (1)
  - DEATH [None]
